FAERS Safety Report 25716459 (Version 1)
Quarter: 2025Q3

REPORT INFORMATION
  Report Type: Spontaneous
  Country: US (occurrence: US)
  Receive Date: 20250822
  Receipt Date: 20250822
  Transmission Date: 20251020
  Serious: No
  Sender: COREPHARMA LLC
  Company Number: US-CorePharma LLC-2183013

PATIENT
  Age: 33 Year

DRUGS (1)
  1. LISINOPRIL [Suspect]
     Active Substance: LISINOPRIL
     Indication: Hypertension

REACTIONS (7)
  - Chest discomfort [Unknown]
  - Wrong technique in product usage process [Unknown]
  - Incorrect dose administered [Unknown]
  - Intentional dose omission [Unknown]
  - Headache [Unknown]
  - Chest pain [Unknown]
  - Weight decreased [Unknown]
